FAERS Safety Report 6161970-7 (Version None)
Quarter: 2009Q2

REPORT INFORMATION
  Report Type: 
  Country: None (occurrence: None)
  Receive Date: 20090417
  Receipt Date: 20090403
  Transmission Date: 20091009
  Serious: Yes (Hospitalization, Other)
  Sender: FDA-Public Use
  Company Number: 2009S1004271

PATIENT
  Age: 51 Year
  Sex: Female

DRUGS (6)
  1. FENTANYL TRANSDERMAL SYSTEM [Suspect]
     Indication: PAIN
     Dosage: 50 UG; EVERY HOUR; TRANSDERMAL
     Route: 062
     Dates: start: 20090201
  2. FENTANYL TRANSDERMAL SYSTEM [Suspect]
  3. ZYPREXA [Suspect]
     Dosage: 2.5 MG; TWICE A DAY; ORAL
     Route: 048
     Dates: start: 20090101
  4. VALIUM [Concomitant]
  5. TRAZODONE [Concomitant]
  6. EFFEXOR [Concomitant]

REACTIONS (7)
  - ANXIETY [None]
  - DIARRHOEA [None]
  - INFLUENZA [None]
  - INSOMNIA [None]
  - LYMPHADENOPATHY [None]
  - MUSCLE TWITCHING [None]
  - VOMITING [None]
